FAERS Safety Report 5591410-8 (Version None)
Quarter: 2008Q1

REPORT INFORMATION
  Report Type: 
  Country: None (occurrence: None)
  Receive Date: 20080111
  Receipt Date: 20080111
  Transmission Date: 20080703
  Serious: Yes (Other)
  Sender: FDA-Public Use
  Company Number: None

PATIENT
  Age: 59 Year
  Sex: Male
  Weight: 101 kg

DRUGS (4)
  1. CCI-779 (TEMSIROLIMUS) [Suspect]
     Indication: MULTIPLE MYELOMA
     Dosage: 15MG/M2 WEEKLY
     Dates: start: 20071226, end: 20080102
  2. VELCADE [Suspect]
     Indication: MULTIPLE MYELOMA
     Dosage: 1.3MG/M2 WEEKLY FOR 4
     Dates: start: 20071205, end: 20080102
  3. ACYCLOVIR [Concomitant]
  4. PERIDEX MOUTHWASH [Concomitant]

REACTIONS (3)
  - DEHYDRATION [None]
  - THROMBOCYTOPENIA [None]
  - UPPER RESPIRATORY TRACT INFECTION [None]
